FAERS Safety Report 11666392 (Version 1)
Quarter: 2015Q4

REPORT INFORMATION
  Report Type: Spontaneous
  Country: FR (occurrence: FR)
  Receive Date: 20151027
  Receipt Date: 20151027
  Transmission Date: 20160304
  Serious: Yes (Hospitalization, Other)
  Sender: FDA-Public Use
  Company Number: FR-PFIZER INC-2015359220

PATIENT
  Age: 59 Year
  Sex: Female

DRUGS (6)
  1. TERALITHE [Suspect]
     Active Substance: LITHIUM CARBONATE
     Dosage: 400MG, 2 TABLETS DAILY (EVENING)
     Route: 048
     Dates: start: 2013, end: 20150921
  2. HALDOL [Suspect]
     Active Substance: HALOPERIDOL
     Dosage: 200 MG, 1X/DAY
     Route: 048
     Dates: start: 20150825
  3. LOXAPAC [Suspect]
     Active Substance: LOXAPINE SUCCINATE
     Dosage: 200 MG, 1X/DAY
     Route: 048
     Dates: start: 20150825
  4. DIAMICRON [Suspect]
     Active Substance: GLICLAZIDE
     Dosage: 60 MG, 2X/DAY
     Route: 048
  5. XANAX [Suspect]
     Active Substance: ALPRAZOLAM
     Dosage: UNK
     Route: 048
     Dates: start: 20150825
  6. TAHOR [Suspect]
     Active Substance: ATORVASTATIN CALCIUM
     Dosage: UNK
     Route: 048

REACTIONS (5)
  - Vomiting [Unknown]
  - Nausea [Unknown]
  - Diarrhoea [Unknown]
  - Blood creatinine increased [Unknown]
  - Dysarthria [Unknown]

NARRATIVE: CASE EVENT DATE: 20150921
